FAERS Safety Report 8456403-1 (Version None)
Quarter: 2012Q2

REPORT INFORMATION
  Report Type: 
  Country: None (occurrence: None)
  Receive Date: 20120621
  Receipt Date: 20120613
  Transmission Date: 20120825
  Serious: Yes (Death)
  Sender: FDA-Public Use
  Company Number: FR-ROCHE-1078413

PATIENT
  Age: 71 Year
  Sex: Female

DRUGS (15)
  1. NEXIUM [Concomitant]
  2. VALIUM [Concomitant]
  3. PLAVIX [Concomitant]
  4. FLUTICASONE PROPIONATE/SALMETEROL [Concomitant]
  5. LASIX [Concomitant]
  6. SINGULAIR [Concomitant]
  7. NEBIVOLOL [Concomitant]
  8. ROCEPHIN [Suspect]
     Indication: LUNG INFECTION
     Route: 058
     Dates: start: 20120601, end: 20120601
  9. ATORVASTATIN [Concomitant]
  10. TRAMADOL HCL [Concomitant]
     Dosage: 100 1P
  11. CACIT D3 [Concomitant]
  12. ABUFENE [Concomitant]
  13. ALENDRONATE SODIUM [Concomitant]
     Dosage: 70/5600
  14. IBUPROFEN (ADVIL) [Concomitant]
  15. CYMBALTA [Concomitant]

REACTIONS (1)
  - CARDIO-RESPIRATORY ARREST [None]
